FAERS Safety Report 11130007 (Version 1)
Quarter: 2015Q2

REPORT INFORMATION
  Report Type: Other
  Country: GB (occurrence: GB)
  Receive Date: 20150521
  Receipt Date: 20150521
  Transmission Date: 20150821
  Serious: Yes (Hospitalization)
  Sender: FDA-Public Use
  Company Number: GB-MYLANLABS-2015M1015797

PATIENT

DRUGS (17)
  1. SIMVASTATIN. [Concomitant]
     Active Substance: SIMVASTATIN
     Dosage: 20 MG, QD (NIGHTLY)
  2. OLANZAPINE. [Suspect]
     Active Substance: OLANZAPINE
     Dosage: 20 MG, QD
  3. LANSOPRAZOLE. [Concomitant]
     Active Substance: LANSOPRAZOLE
     Dosage: 30 MG, QD (IN THE MORNING)
  4. PRO D3 [Concomitant]
     Dosage: 20000 IU, QD (ONCE DAILY FOR 14 DAYS THEN ONE EACH MONTH. ON DAY 5 ON DATE OF REPORT)
  5. CITALOPRAM [Concomitant]
     Active Substance: CITALOPRAM HYDROBROMIDE
     Dosage: 30 MG, QD
  6. OLANZAPINE. [Concomitant]
     Active Substance: OLANZAPINE
     Dosage: 5 MG, QD
  7. TIOTROPIUM [Concomitant]
     Active Substance: TIOTROPIUM
     Dosage: 1 DF, QD (IN THE MORNING. 18 MICROGRAM INHALER.)
     Route: 055
  8. FERROUS SULFATE [Concomitant]
     Active Substance: FERROUS SULFATE\FERROUS SULFATE, DRIED
     Dosage: 200 MG, TID
  9. METFORMIN [Concomitant]
     Active Substance: METFORMIN HYDROCHLORIDE
     Dosage: 1500 MG, QD (ONE IN THE MORNING AND TWO IN THE EVENING.)
  10. PRIADEL [Concomitant]
     Active Substance: LITHIUM CARBONATE
     Dosage: 1000 MG, QD (2 X 400MG AND 1 X 200MG AT NIGHT)
  11. SYMBICORT [Concomitant]
     Active Substance: BUDESONIDE\FORMOTEROL FUMARATE DIHYDRATE
     Dosage: UNK (1 PUFF TWICE DAILY INCREASING TO 2 PUFFS TWICE DAILY IF REQUIRED)
     Route: 055
  12. LACTULOSE. [Concomitant]
     Active Substance: LACTULOSE
     Dosage: 15 ML, BID
  13. BRICANYL [Concomitant]
     Active Substance: TERBUTALINE SULFATE
     Dosage: 1 DF, UNK (1 PUFF FOUR TIMES DAILY)
     Route: 055
  14. ZUCLOPENTHIXOL DECANOATE [Concomitant]
     Active Substance: ZUCLOPENTHIXOL DECANOATE
     Dosage: 300 MG, BIWEEKLY
  15. ANTIPSYCHOTICS [Concomitant]
     Active Substance: UNSPECIFIED INGREDIENT
     Indication: BIPOLAR DISORDER
     Dosage: UNK
  16. DOXAZOSIN [Concomitant]
     Active Substance: DOXAZOSIN\DOXAZOSIN MESYLATE
     Dosage: 1 MG, QD (IN THE MORNING)
  17. PROCYCLIDINE [Concomitant]
     Active Substance: PROCYCLIDINE
     Dosage: 20 MG, QD (TWO IN THE MORNING AND 2 NIGHTLY)

REACTIONS (3)
  - Malaise [Unknown]
  - Blood glucose increased [Recovering/Resolving]
  - Candida infection [Unknown]
